FAERS Safety Report 4284023-1 (Version None)
Quarter: 2004Q1

REPORT INFORMATION
  Report Type: 
  Country: None (occurrence: None)
  Receive Date: 20040130
  Receipt Date: 20040126
  Transmission Date: 20041129
  Serious: Yes (Hospitalization)
  Sender: FDA-Public Use
  Company Number: US-JNJFOC-20040105601

PATIENT
  Age: 10 Month
  Sex: Female

DRUGS (5)
  1. TOPAMAX [Suspect]
     Indication: CONVULSION
     Dosage: 75 MG , 2 IN 1 DAY
     Dates: start: 20030601
  2. ZANTAC [Concomitant]
  3. NIFEDIPINE [Concomitant]
  4. OPTHALMIC DROPS (OPTHALMOLOGICALS) [Concomitant]
  5. CAPTOPRIL [Concomitant]

REACTIONS (6)
  - CONVULSION [None]
  - DIARRHOEA [None]
  - RESPIRATORY SYNCYTIAL VIRUS INFECTION [None]
  - TREATMENT NONCOMPLIANCE [None]
  - VIRAL INFECTION [None]
  - VOMITING [None]
